FAERS Safety Report 13883037 (Version 2)
Quarter: 2017Q4

REPORT INFORMATION
  Report Type: Report from Study
  Country: US (occurrence: US)
  Receive Date: 20170818
  Receipt Date: 20171016
  Transmission Date: 20180320
  Serious: No
  Sender: FDA-Public Use
  Company Number: US-INCYTE CORPORATION-2017IN006200

PATIENT

DRUGS (1)
  1. JAKAFI [Suspect]
     Active Substance: RUXOLITINIB
     Indication: POLYCYTHAEMIA VERA
     Dosage: UNK
     Route: 048

REACTIONS (1)
  - Haematocrit abnormal [Unknown]
